FAERS Safety Report 4931614-8 (Version None)
Quarter: 2006Q1

REPORT INFORMATION
  Report Type: 
  Country: None (occurrence: None)
  Receive Date: 20060303
  Receipt Date: 20060223
  Transmission Date: 20060701
  Serious: Yes (Other)
  Sender: FDA-Public Use
  Company Number: AT-JNJFOC-20060205727

PATIENT
  Sex: Female

DRUGS (2)
  1. TOPAMAX [Suspect]
     Route: 048
  2. TOPAMAX [Suspect]
     Indication: MIGRAINE
     Dosage: DOSE TITRATION FROM 25 MG UP TO 100 MG.
     Route: 048

REACTIONS (4)
  - FALL [None]
  - LOWER LIMB FRACTURE [None]
  - MOVEMENT DISORDER [None]
  - NAUSEA [None]
